FAERS Safety Report 13462410 (Version 2)
Quarter: 2017Q2

REPORT INFORMATION
  Report Type: Other
  Country: JP (occurrence: JP)
  Receive Date: 20170420
  Receipt Date: 20170511
  Transmission Date: 20170830
  Serious: Yes (Hospitalization)
  Sender: FDA-Public Use
  Company Number: JP-ACTELION-A-CH2017-152735

PATIENT
  Age: 76 Year
  Sex: Male

DRUGS (4)
  1. BOSENTAN. [Suspect]
     Active Substance: BOSENTAN
     Dosage: 125 MG, QD
     Route: 048
  2. OXYGEN. [Concomitant]
     Active Substance: OXYGEN
     Indication: PULMONARY HYPERTENSION
  3. BOSENTAN. [Suspect]
     Active Substance: BOSENTAN
     Indication: PULMONARY HYPERTENSION
     Dosage: 250 MG, QD
     Route: 048
  4. RIOCIGUAT [Concomitant]
     Active Substance: RIOCIGUAT
     Indication: PULMONARY HYPERTENSION
     Dosage: 4.5 MG, QD

REACTIONS (7)
  - Catheterisation cardiac [Unknown]
  - Loss of consciousness [Recovering/Resolving]
  - Pulmonary arterial pressure increased [Unknown]
  - Dyspnoea exertional [Recovering/Resolving]
  - Hypoxia [Recovering/Resolving]
  - Atrial fibrillation [Recovering/Resolving]
  - Pulmonary hypertension [Unknown]

NARRATIVE: CASE EVENT DATE: 201606
